FAERS Safety Report 8358574-4 (Version None)
Quarter: 2012Q2

REPORT INFORMATION
  Report Type: 
  Country: None (occurrence: None)
  Receive Date: 20120514
  Receipt Date: 20120508
  Transmission Date: 20120825
  Serious: Yes (Other)
  Sender: FDA-Public Use
  Company Number: JP-PFIZER INC-2012112395

PATIENT
  Age: 69 Year
  Sex: Female

DRUGS (4)
  1. RIMATIL [Suspect]
     Indication: RHEUMATOID ARTHRITIS
     Dosage: 200 MG DAILY
     Route: 048
     Dates: start: 20090101, end: 20120501
  2. RISEDRONATE SODIUM [Concomitant]
     Dosage: 17.5 MG, WEEKLY
     Route: 048
  3. AZULFIDINE [Suspect]
     Indication: RHEUMATOID ARTHRITIS
     Dosage: 1000 MG/DAY
     Route: 048
     Dates: start: 20090101, end: 20120501
  4. MUCOSTA [Concomitant]
     Dosage: 100 MG, 3X/DAY
     Route: 048

REACTIONS (1)
  - DRUG ERUPTION [None]
